FAERS Safety Report 7145697-0 (Version None)
Quarter: 2010Q4

REPORT INFORMATION
  Report Type: 
  Country: None (occurrence: None)
  Receive Date: 20101208
  Receipt Date: 20101129
  Transmission Date: 20110411
  Serious: No
  Sender: FDA-Public Use
  Company Number: US-ABBOTT-10P-163-0685680-00

PATIENT
  Sex: Female
  Weight: 61.29 kg

DRUGS (4)
  1. ERYTHROMYCIN ESTOLATE [Suspect]
     Indication: LABYRINTHITIS
     Dates: start: 20101109, end: 20101110
  2. ERYTHROMYCIN ESTOLATE [Suspect]
     Indication: OTITIS MEDIA
  3. TRAMADOL [Concomitant]
     Indication: PAIN
  4. NOVALOG INSULIN [Concomitant]
     Indication: DIABETES MELLITUS

REACTIONS (7)
  - ABDOMINAL PAIN UPPER [None]
  - DIARRHOEA [None]
  - DIZZINESS [None]
  - NAUSEA [None]
  - PRODUCT ODOUR ABNORMAL [None]
  - RETCHING [None]
  - VOMITING [None]
